FAERS Safety Report 20596711 (Version 1)
Quarter: 2022Q1

REPORT INFORMATION
  Report Type: Spontaneous
  Country: RU (occurrence: RU)
  Receive Date: 20220315
  Receipt Date: 20220315
  Transmission Date: 20220423
  Serious: Yes (Life-Threatening)
  Sender: FDA-Public Use
  Company Number: RU-ABBVIE-22K-251-4315864-00

PATIENT
  Age: 39 Year
  Sex: Male
  Weight: 78 kg

DRUGS (2)
  1. VALPROATE SODIUM [Suspect]
     Active Substance: VALPROATE SODIUM
     Indication: Partial seizures
     Dosage: 2 DAY
     Route: 048
     Dates: start: 2008, end: 2018
  2. VALPROIC ACID [Suspect]
     Active Substance: VALPROIC ACID
     Indication: Partial seizures
     Dosage: 2 DAYS
     Route: 048
     Dates: start: 2008, end: 2018

REACTIONS (2)
  - Loss of consciousness [Unknown]
  - Partial seizures [Unknown]
